FAERS Safety Report 10467516 (Version 2)
Quarter: 2014Q3

REPORT INFORMATION
  Report Type: Spontaneous
  Country: PL (occurrence: PL)
  Receive Date: 20140922
  Receipt Date: 20140924
  Transmission Date: 20150326
  Serious: Yes (Other)
  Sender: FDA-Public Use
  Company Number: PL-IPSEN BIOPHARMACEUTICALS, INC.-2014-5021

PATIENT
  Age: 60 Year
  Sex: Female

DRUGS (3)
  1. ISOTOPE THERAPY (90Y-DOTA TATE) [Suspect]
     Active Substance: YTTRIUM Y-90
     Indication: PRODUCT USED FOR UNKNOWN INDICATION
     Dosage: 200MCI
     Route: 065
     Dates: start: 201107, end: 201109
  2. SOMATOSTATIN ANALOGUE [Suspect]
     Active Substance: SOMATOSTATIN
     Dosage: NOT REPORTED
     Route: 065
     Dates: start: 201201
  3. SOMATOSTATIN ANALOGUE [Suspect]
     Active Substance: SOMATOSTATIN
     Indication: CARCINOID SYNDROME
     Dosage: NOT REPORTED
     Route: 065
     Dates: end: 201103

REACTIONS (2)
  - Nephrolithiasis [Unknown]
  - White blood cell count decreased [Unknown]

NARRATIVE: CASE EVENT DATE: 2011
